FAERS Safety Report 6563420-5 (Version None)
Quarter: 2010Q1

REPORT INFORMATION
  Report Type: 
  Country: None (occurrence: None)
  Receive Date: 20100130
  Receipt Date: 20091217
  Transmission Date: 20100710
  Serious: No
  Sender: FDA-Public Use
  Company Number: US-ABBOTT-09P-163-0615205-00

PATIENT
  Sex: Female

DRUGS (1)
  1. HUMIRA [Suspect]
     Indication: PSORIASIS
     Dates: start: 20090603

REACTIONS (6)
  - BLOOD ALKALINE PHOSPHATASE DECREASED [None]
  - BLOOD THYROID STIMULATING HORMONE [None]
  - HAEMATOCRIT DECREASED [None]
  - MEAN CELL HAEMOGLOBIN INCREASED [None]
  - PSORIASIS [None]
  - RED BLOOD CELL COUNT DECREASED [None]
